FAERS Safety Report 20636060 (Version 2)
Quarter: 2022Q2

REPORT INFORMATION
  Report Type: Spontaneous
  Country: CA (occurrence: CA)
  Receive Date: 20220325
  Receipt Date: 20220406
  Transmission Date: 20220721
  Serious: Yes (Other)
  Sender: FDA-Public Use
  Company Number: CA-002147023-NVSC2022CA059621

PATIENT
  Age: 47 Year
  Sex: Female

DRUGS (8)
  1. DICLOFENAC [Suspect]
     Active Substance: DICLOFENAC
     Indication: Product used for unknown indication
     Dosage: UNK
     Route: 065
  2. DICLOFENAC [Suspect]
     Active Substance: DICLOFENAC
     Dosage: UNK
     Route: 065
     Dates: end: 2016
  3. HUMIRA [Suspect]
     Active Substance: ADALIMUMAB
     Indication: Product used for unknown indication
     Dosage: UNK
     Route: 065
     Dates: start: 20211125
  4. HUMIRA [Suspect]
     Active Substance: ADALIMUMAB
     Dosage: UNK
     Route: 065
     Dates: end: 20220104
  5. HUMIRA [Suspect]
     Active Substance: ADALIMUMAB
     Dosage: UNK
     Route: 065
     Dates: start: 201602
  6. CELEBREX [Suspect]
     Active Substance: CELECOXIB
     Indication: Product used for unknown indication
     Dosage: 200 MG, BID
     Route: 065
     Dates: start: 2015
  7. OXYCODONE [Suspect]
     Active Substance: OXYCODONE
     Indication: Pain
     Dosage: UNK (OCCASIONALLY IF PAIN)
     Route: 065
  8. FLEXERIL [Suspect]
     Active Substance: CYCLOBENZAPRINE HYDROCHLORIDE
     Indication: Product used for unknown indication
     Dosage: UNK (OCCASIONALLY)
     Route: 065
     Dates: start: 2015

REACTIONS (5)
  - Ankylosing spondylitis [Unknown]
  - Nephrolithiasis [Not Recovered/Not Resolved]
  - Hypothyroidism [Unknown]
  - Palpitations [Unknown]
  - Fibromyalgia [Unknown]

NARRATIVE: CASE EVENT DATE: 20050101
